FAERS Safety Report 25621742 (Version 1)
Quarter: 2025Q3

REPORT INFORMATION
  Report Type: Spontaneous
  Country: CN (occurrence: CN)
  Receive Date: 20250730
  Receipt Date: 20250730
  Transmission Date: 20251021
  Serious: Yes (Life-Threatening, Hospitalization, Other)
  Sender: BAXTER
  Company Number: CN-MLMSERVICE-20170918-0893992-1

PATIENT
  Age: 29 Year
  Sex: Female

DRUGS (3)
  1. METRONIDAZOLE [Suspect]
     Active Substance: METRONIDAZOLE
     Indication: Antibiotic therapy
     Route: 065
  2. CLOTRIMAZOLE [Suspect]
     Active Substance: CLOTRIMAZOLE
     Indication: Antibiotic therapy
     Route: 065
  3. CEPHALOSPORIN C [Suspect]
     Active Substance: CEPHALOSPORIN C
     Indication: Antibiotic therapy
     Route: 065

REACTIONS (12)
  - Vanishing bile duct syndrome [Recovering/Resolving]
  - Drug-induced liver injury [Recovering/Resolving]
  - Alanine aminotransferase increased [Recovering/Resolving]
  - Aspartate aminotransferase increased [Recovering/Resolving]
  - Blood alkaline phosphatase increased [Recovering/Resolving]
  - Gamma-glutamyltransferase increased [Recovering/Resolving]
  - Blood bilirubin increased [Recovering/Resolving]
  - Bilirubin conjugated increased [Recovering/Resolving]
  - Blood bilirubin unconjugated increased [Recovering/Resolving]
  - Jaundice [Recovering/Resolving]
  - Chromaturia [Recovering/Resolving]
  - Pruritus [Recovering/Resolving]
